FAERS Safety Report 4793396-2 (Version None)
Quarter: 2005Q4

REPORT INFORMATION
  Report Type: 
  Country: None (occurrence: None)
  Receive Date: 20051005
  Receipt Date: 20050915
  Transmission Date: 20060501
  Serious: Yes (Hospitalization)
  Sender: FDA-Public Use
  Company Number: USA0509108574

PATIENT
  Age: 15 Year
  Sex: Female

DRUGS (3)
  1. STRATTERA [Suspect]
  2. ZYPREXA [Suspect]
     Dosage: 5 MG
  3. ABILIFY [Concomitant]

REACTIONS (2)
  - INCREASED APPETITE [None]
  - MANIA [None]
